FAERS Safety Report 25690396 (Version 1)
Quarter: 2025Q3

REPORT INFORMATION
  Report Type: Spontaneous
  Country: EU (occurrence: EU)
  Receive Date: 20250818
  Receipt Date: 20250818
  Transmission Date: 20251021
  Serious: Yes (Hospitalization)
  Sender: SANOFI AVENTIS
  Company Number: EU-DialogSolutions-SAAVPROD-PI811592-C1

PATIENT
  Age: 59 Month
  Sex: Male

DRUGS (1)
  1. DUPILUMAB [Suspect]
     Active Substance: DUPILUMAB
     Indication: Chronic rhinosinusitis with nasal polyps
     Dosage: 300 MG, QOW

REACTIONS (8)
  - Sarcoidosis [Recovered/Resolved]
  - Nodule [Recovered/Resolved]
  - Skin mass [Recovered/Resolved]
  - Erythema nodosum [Recovered/Resolved]
  - Panniculitis [Recovered/Resolved]
  - Pulmonary mass [Recovered/Resolved]
  - Pulmonary granuloma [Recovered/Resolved]
  - Lung consolidation [Recovered/Resolved]
